FAERS Safety Report 8115130-0 (Version None)
Quarter: 2012Q1

REPORT INFORMATION
  Report Type: 
  Country: None (occurrence: None)
  Receive Date: 20120201
  Receipt Date: 20120124
  Transmission Date: 20120608
  Serious: Yes (Death, Life-Threatening, Hospitalization, Disabling, Other)
  Sender: FDA-Public Use
  Company Number: 2011SP052956

PATIENT
  Age: 26 Year
  Sex: Male
  Weight: 69.8539 kg

DRUGS (7)
  1. HUMIRA [Concomitant]
  2. FOSAMAX [Concomitant]
  3. ATENOLOL [Concomitant]
  4. ADDERALL 5 [Concomitant]
  5. PEG-INTRON [Suspect]
     Indication: HEPATITIS C
     Dosage: 120 MCG;QW;SC
     Route: 058
     Dates: start: 20110722, end: 20111005
  6. ENTOCORT EC [Concomitant]
  7. LUVOX [Concomitant]

REACTIONS (4)
  - RESPIRATORY FAILURE [None]
  - PNEUMONIA [None]
  - RESPIRATORY ARREST [None]
  - INFECTION [None]
